FAERS Safety Report 4818307-2 (Version None)
Quarter: 2005Q3

REPORT INFORMATION
  Report Type: 
  Country: None (occurrence: None)
  Receive Date: 20050929
  Receipt Date: 20050705
  Transmission Date: 20060218
  Serious: No
  Sender: FDA-Public Use
  Company Number: 05P-163-0304880-00

PATIENT
  Age: 54 Year
  Sex: Male
  Weight: 70.3075 kg

DRUGS (6)
  1. HUMIRA [Suspect]
     Indication: RHEUMATOID ARTHRITIS
     Dosage: 40 MG, 1 IN 2 WK, SUBCUTANEOUS
     Route: 058
     Dates: start: 20050614
  2. PREDNISONE [Concomitant]
  3. CELECOXIB [Concomitant]
  4. ROSIGLITAZONE MALEATE [Concomitant]
  5. CAPTOPRIL [Concomitant]
  6. ALENDRONATE SODIUM [Concomitant]

REACTIONS (3)
  - ANXIETY [None]
  - ARTHRALGIA [None]
  - UVEITIS [None]
